FAERS Safety Report 4714246-6 (Version None)
Quarter: 2005Q2

REPORT INFORMATION
  Report Type: 
  Country: None (occurrence: None)
  Receive Date: 20050630
  Receipt Date: 20050131
  Transmission Date: 20051028
  Serious: Yes (Life-Threatening, Other)
  Sender: FDA-Public Use
  Company Number: USA040978744

PATIENT
  Age: 55 Year
  Sex: Female

DRUGS (3)
  1. HUMALOG [Suspect]
     Dates: start: 20020101
  2. GLUCAGON [Suspect]
  3. LANTUS [Concomitant]

REACTIONS (5)
  - BLOOD GLUCOSE DECREASED [None]
  - BLOOD GLUCOSE INCREASED [None]
  - DIABETIC COMA [None]
  - MEDICATION ERROR [None]
  - SOMNOLENCE [None]
